FAERS Safety Report 15043651 (Version 7)
Quarter: 2020Q1

REPORT INFORMATION
  Report Type: Report from Study
  Country: RU (occurrence: RU)
  Receive Date: 20180621
  Receipt Date: 20200217
  Transmission Date: 20200409
  Serious: Yes (Hospitalization)
  Sender: FDA-Public Use
  Company Number: RU-ROCHE-2117711

PATIENT
  Age: 43 Year
  Sex: Male
  Weight: 105 kg

DRUGS (7)
  1. COBIMETINIB. [Suspect]
     Active Substance: COBIMETINIB
     Indication: MALIGNANT MELANOMA
     Dosage: DATE OF MOST RECENT DOSE OF COBIMETINIB PRIOR TO AE ONSET 28/APR/2018?DATE OF MOST RECENT DOSE OF CO
     Route: 048
     Dates: start: 20170523
  2. THIAMAZOLE [Concomitant]
     Active Substance: METHIMAZOLE
     Indication: HYPERTHYROIDISM
     Route: 065
     Dates: start: 20180315, end: 20180425
  3. ADEMETIONINE [Concomitant]
     Active Substance: ADEMETIONINE
     Indication: ALANINE AMINOTRANSFERASE INCREASED
     Route: 065
     Dates: start: 20170711
  4. ADEMETIONINE [Concomitant]
     Active Substance: ADEMETIONINE
     Indication: ASPARTATE AMINOTRANSFERASE INCREASED
  5. VEMURAFENIB. [Suspect]
     Active Substance: VEMURAFENIB
     Indication: MALIGNANT MELANOMA
     Dosage: DATE OF MOST RECENT DOSE (6 TABLET) OF VEMURAFENIB PRIOR TO AE ONSET 28/APR/2018?DATE OF MOST RECENT
     Route: 048
     Dates: start: 20170523
  6. OMEPRAZOLE. [Concomitant]
     Active Substance: OMEPRAZOLE
     Route: 065
     Dates: start: 20180430
  7. ATEZOLIZUMAB. [Suspect]
     Active Substance: ATEZOLIZUMAB
     Indication: MALIGNANT MELANOMA
     Dosage: DATE OF MOST RECENT DOSE OF BLINDED ATEZOLIZUMAB PRIOR TO AE ONSET 26/APR/2018?TOTAL VOLUME OF LAST
     Route: 042
     Dates: start: 20170620

REACTIONS (7)
  - Blood creatine phosphokinase increased [Recovered/Resolved with Sequelae]
  - Diabetes mellitus [Not Recovered/Not Resolved]
  - Chorioretinopathy [Recovered/Resolved]
  - Agranulocytosis [Recovered/Resolved]
  - Pneumonitis [Recovered/Resolved]
  - Pneumonitis [Recovered/Resolved]
  - Hyperthyroidism [Recovered/Resolved]

NARRATIVE: CASE EVENT DATE: 20170905
